FAERS Safety Report 10997226 (Version 1)
Quarter: 2015Q2

REPORT INFORMATION
  Report Type: Spontaneous
  Country: US (occurrence: None)
  Receive Date: 20150407
  Receipt Date: 20150407
  Transmission Date: 20150821
  Serious: Yes (Hospitalization)
  Sender: FDA-Public Use
  Company Number: None

PATIENT
  Age: 58 Year
  Sex: Female
  Weight: 110.8 kg

DRUGS (1)
  1. LENALIDOMIDE (CC-5013) [Suspect]
     Active Substance: LENALIDOMIDE
     Dates: end: 20150322

REACTIONS (6)
  - Atrial fibrillation [None]
  - Palpitations [None]
  - Heart rate increased [None]
  - Dyspnoea [None]
  - Dyspnoea exertional [None]
  - Hyperhidrosis [None]

NARRATIVE: CASE EVENT DATE: 20150323
